FAERS Safety Report 21027376 (Version 1)
Quarter: 2022Q2

REPORT INFORMATION
  Report Type: Report from Study
  Country: CA (occurrence: CA)
  Receive Date: 20220630
  Receipt Date: 20220630
  Transmission Date: 20220721
  Serious: Yes (Other)
  Sender: FDA-Public Use
  Company Number: CA-JNJFOC-20220455942

PATIENT
  Age: 44 Year
  Sex: Female
  Weight: 120 kg

DRUGS (2)
  1. STELARA [Suspect]
     Active Substance: USTEKINUMAB
     Indication: Crohn^s disease
     Dosage: LAST DOSE ON 06-MAY-2022
     Route: 058
     Dates: start: 20201218
  2. STELARA [Suspect]
     Active Substance: USTEKINUMAB

REACTIONS (6)
  - Ankylosing spondylitis [Not Recovered/Not Resolved]
  - Influenza like illness [Recovered/Resolved]
  - COVID-19 [Recovered/Resolved]
  - Oedema peripheral [Unknown]
  - Blood pressure increased [Recovering/Resolving]
  - Attention deficit hyperactivity disorder [Recovering/Resolving]

NARRATIVE: CASE EVENT DATE: 20220422
